FAERS Safety Report 10213661 (Version 1)
Quarter: 2014Q2

REPORT INFORMATION
  Report Type: Spontaneous
  Country: US (occurrence: US)
  Receive Date: 20140603
  Receipt Date: 20140603
  Transmission Date: 20141212
  Serious: No
  Sender: FDA-Public Use
  Company Number: US-009507513-1405USA015378

PATIENT
  Sex: Female

DRUGS (1)
  1. CLARITIN-D [Suspect]
     Dosage: UNK
     Route: 048

REACTIONS (5)
  - Constipation [Unknown]
  - Gastrointestinal disorder [Unknown]
  - Nasal discomfort [Unknown]
  - Paranasal sinus discomfort [Unknown]
  - Product quality issue [Unknown]
